FAERS Safety Report 8057561-3 (Version None)
Quarter: 2012Q1

REPORT INFORMATION
  Report Type: 
  Country: None (occurrence: None)
  Receive Date: 20120120
  Receipt Date: 20120110
  Transmission Date: 20120608
  Serious: Yes (Hospitalization)
  Sender: FDA-Public Use
  Company Number: FR-AMGEN-FRASP2011067725

PATIENT
  Age: 28 Year
  Sex: Male

DRUGS (5)
  1. NAPROSYN [Concomitant]
     Dosage: TABS
     Route: 048
  2. CALCIPOTRIENE [Concomitant]
  3. PANTOPRAZOLE [Concomitant]
     Dosage: TABS
     Route: 048
  4. ENBREL [Suspect]
     Indication: ANKYLOSING SPONDYLITIS
     Dosage: 50 MG, WEEKLY
     Route: 058
     Dates: start: 20050901, end: 20110801
  5. ACETAMINOPHEN AND TRAMADOL HCL [Concomitant]
     Dosage: TABS
     Route: 048

REACTIONS (1)
  - TESTIS CANCER [None]
